FAERS Safety Report 15828432 (Version 1)
Quarter: 2019Q1

REPORT INFORMATION
  Report Type: Spontaneous
  Country: US (occurrence: US)
  Receive Date: 20190115
  Receipt Date: 20190115
  Transmission Date: 20190417
  Serious: No
  Sender: FDA-Public Use
  Company Number: US-ALLERGAN-1806658US

PATIENT
  Age: 76 Year
  Sex: Female
  Weight: 54.42 kg

DRUGS (1)
  1. RESTASIS [Suspect]
     Active Substance: CYCLOSPORINE
     Indication: DRY EYE
     Dosage: 1 GTT, BID
     Route: 047
     Dates: start: 2017, end: 201802

REACTIONS (4)
  - Immune system disorder [Unknown]
  - Tremor [Recovering/Resolving]
  - Fatigue [Recovering/Resolving]
  - Eye irritation [Recovering/Resolving]
